FAERS Safety Report 9778999 (Version 2)
Quarter: 2013Q4

REPORT INFORMATION
  Report Type: Report from Study
  Country: RU (occurrence: RU)
  Receive Date: 20131223
  Receipt Date: 20131223
  Transmission Date: 20140711
  Serious: Yes (Other)
  Sender: FDA-Public Use
  Company Number: RU-BRISTOL-MYERS SQUIBB COMPANY-19879063

PATIENT
  Age: 55 Year
  Sex: Female

DRUGS (3)
  1. REYATAZ CAPS [Suspect]
     Indication: HIV INFECTION
     Route: 048
     Dates: start: 20121225
  2. RITONAVIR [Concomitant]
  3. COMBIVIR [Concomitant]

REACTIONS (4)
  - Yellow skin [Recovered/Resolved]
  - Ocular icterus [Recovered/Resolved]
  - Nausea [Recovered/Resolved]
  - Mitochondrial toxicity [Unknown]
